FAERS Safety Report 4666896-3 (Version None)
Quarter: 2005Q2

REPORT INFORMATION
  Report Type: 
  Country: None (occurrence: None)
  Receive Date: 20050518
  Receipt Date: 20040525
  Transmission Date: 20051028
  Serious: Yes (Other)
  Sender: FDA-Public Use
  Company Number: 2004215320US

PATIENT
  Age: 35 Year
  Sex: Female
  Weight: 72.6 kg

DRUGS (2)
  1. DEPO-PROVERA [Suspect]
     Indication: CONTRACEPTION
     Dosage: 150 MG, FIRST INJECTION, INTRAMUSCULAR;  150 MG, MOST RECENT INJECT., INTRAMUSCULAR
     Route: 030
     Dates: start: 20030904, end: 20030904
  2. DEPO-PROVERA [Suspect]
     Indication: CONTRACEPTION
     Dosage: 150 MG, FIRST INJECTION, INTRAMUSCULAR;  150 MG, MOST RECENT INJECT., INTRAMUSCULAR
     Route: 030
     Dates: start: 20040314, end: 20040314

REACTIONS (2)
  - MENORRHAGIA [None]
  - WEIGHT INCREASED [None]
